FAERS Safety Report 21128684 (Version 2)
Quarter: 2022Q3

REPORT INFORMATION
  Report Type: Other
  Country: IT (occurrence: None)
  Receive Date: 20220725
  Receipt Date: 20220809
  Transmission Date: 20221027
  Serious: Yes (Death)
  Sender: FDA-Public Use
  Company Number: IT-ROCHE-3146092

PATIENT

DRUGS (15)
  1. RITUXIMAB [Suspect]
     Active Substance: RITUXIMAB
     Indication: Diffuse large B-cell lymphoma
     Dosage: STANDARD DOSAGE, AT A 3-WEEK INTERVAL
     Route: 042
  2. CYCLOPHOSPHAMIDE [Suspect]
     Active Substance: CYCLOPHOSPHAMIDE
     Indication: Diffuse large B-cell lymphoma
     Dosage: STANDARD DOSAGE, AT A 3-WEEK INTERVAL (CYCLE 4, TO RECEIVE R-COMP WHICH CONSISTED OF 1-DAY OUTPATIEN
     Route: 042
  3. CYCLOPHOSPHAMIDE [Suspect]
     Active Substance: CYCLOPHOSPHAMIDE
     Route: 042
  4. VINCRISTINE [Suspect]
     Active Substance: VINCRISTINE
     Indication: Diffuse large B-cell lymphoma
     Dosage: (UP TO A MAXIMAL DOSE OF 2 MG)
     Route: 042
  5. VINCRISTINE [Suspect]
     Active Substance: VINCRISTINE
     Dosage: STANDARD DOSAGE, AT A 3-WEEK INTERVAL (CYCLE 4, TO RECEIVE R-COMP WHICH CONSISTED OF 1-DAY OUTPATIEN
     Route: 042
  6. PREDNISONE [Suspect]
     Active Substance: PREDNISONE
     Indication: Diffuse large B-cell lymphoma
     Dosage: FOR 5 DAYS, AT A 3-WEEK INTERVAL
     Route: 042
  7. DOXORUBICIN [Suspect]
     Active Substance: DOXORUBICIN
     Indication: Diffuse large B-cell lymphoma
     Dosage: IN THE FIRST THREE CYCLES
     Route: 042
  8. DOXORUBICIN [Suspect]
     Active Substance: DOXORUBICIN
     Dosage: 150 MG/M2 BY GIVING A STANDARD DOSE OF 50 MG/M2 (CYCLE 4)
     Route: 042
  9. DOXORUBICIN [Suspect]
     Active Substance: DOXORUBICIN
     Dosage: DE-ESCALATED DOSE OF 50MG/M2, AT A 3-WEEK INTERVAL (CYCLE 4, TO RECEIVE R-COMP WHICH CONSISTED OF 1-
     Route: 042
  10. SULFAMETHOXAZOLE\TRIMETHOPRIM [Concomitant]
     Active Substance: SULFAMETHOXAZOLE\TRIMETHOPRIM
     Dosage: 960 (160 + 800) MG ORALLY EVERY 12 H FOR TWICE A WEEK
     Route: 048
  11. ACYCLOVIR [Concomitant]
     Active Substance: ACYCLOVIR
     Dosage: FROM THE START OF CHEMOTHERAPY UNTIL 1 MONTH AFTER THE LAST CYCLE.
     Route: 048
  12. METHYLPREDNISOLONE [Concomitant]
     Active Substance: METHYLPREDNISOLONE
     Dosage: ROUTINELY  IN EVERY COURSE
     Route: 042
  13. DIPHENHYDRAMINE [Concomitant]
     Active Substance: DIPHENHYDRAMINE
     Dosage: ROUTINELY IN EVERY COURSE
     Route: 042
  14. FEBUXOSTAT [Concomitant]
     Active Substance: FEBUXOSTAT
     Dosage: ROUTINELY IN EVERY COURSE
     Route: 048
  15. LIPEGFILGRASTIM [Concomitant]
     Active Substance: LIPEGFILGRASTIM
     Dosage: ADMINISTERED SUBCUTANEOUSLY, ON DAY 3 OF EVERY 3 WEEK CYCLE

REACTIONS (2)
  - Alveolitis [Fatal]
  - COVID-19 [Fatal]
